FAERS Safety Report 23274309 (Version 1)
Quarter: 2023Q4

REPORT INFORMATION
  Report Type: Report from Study
  Country: US (occurrence: None)
  Receive Date: 20231208
  Receipt Date: 20231208
  Transmission Date: 20240109
  Serious: Yes (Other)
  Sender: FDA-Public Use
  Company Number: 2023A275715

PATIENT
  Sex: Female
  Weight: 68 kg

DRUGS (9)
  1. LYNPARZA [Suspect]
     Active Substance: OLAPARIB
     Indication: Ovarian cancer
     Route: 048
     Dates: start: 20230921
  2. DEXLANSOPRAZOLE DR [Concomitant]
  3. EFFEXOR XR [Concomitant]
     Active Substance: VENLAFAXINE HYDROCHLORIDE
  4. TOVIAZ [Concomitant]
     Active Substance: FESOTERODINE FUMARATE
  5. VITAMIN B12 [Concomitant]
     Active Substance: CYANOCOBALAMIN
  6. STOOL SOFTENER-LAXATIVE [Concomitant]
  7. CALCIUM CITRATE - VITAMIN D [Concomitant]
  8. XARELTO [Concomitant]
     Active Substance: RIVAROXABAN
  9. OMEPRAZOLE [Concomitant]
     Active Substance: OMEPRAZOLE

REACTIONS (2)
  - Atrial fibrillation [Unknown]
  - Product use complaint [Unknown]
